FAERS Safety Report 19879163 (Version 1)
Quarter: 2021Q3

REPORT INFORMATION
  Report Type: Spontaneous
  Country: CN (occurrence: CN)
  Receive Date: 20210923
  Receipt Date: 20210923
  Transmission Date: 20211014
  Serious: Yes (Hospitalization)
  Sender: FDA-Public Use
  Company Number: CN-BAXTER-2021BAX029457

PATIENT
  Age: 34 Year
  Sex: Female
  Weight: 58 kg

DRUGS (4)
  1. 0.9% SODIUM CHLORIDE INJECTION [Suspect]
     Active Substance: SODIUM CHLORIDE
     Indication: MEDICATION DILUTION
     Dosage: 0.9% SODIUM CHLORIDE INJECTION 100ML + CYCLOPHOSPHAMIDE FOR INJECTION 900 MG IVGTT D1
     Route: 041
     Dates: start: 20210825
  2. ENDOXAN [Suspect]
     Active Substance: CYCLOPHOSPHAMIDE
     Indication: BREAST CANCER FEMALE
     Dosage: 0.9% SODIUM CHLORIDE INJECTION 100ML + CYCLOPHOSPHAMIDE FOR INJECTION 900 MG IVGTT D1
     Route: 041
     Dates: start: 20210825, end: 20210825
  3. PIRARUBICIN HYDROCHLORIDE [Suspect]
     Active Substance: PIRARUBICIN HYDROCHLORIDE
     Indication: BREAST CANCER FEMALE
     Dosage: 5% GLUCOSE INJECTION 100ML + PIRARUBICIN HYDROCHLORIDE FOR INJECTION 90 MG IVGTT D1
     Route: 041
     Dates: start: 20210825, end: 20210825
  4. 5% GLUCOSE  INJECTION [Suspect]
     Active Substance: DEXTROSE
     Indication: MEDICATION DILUTION
     Dosage: 5% GLUCOSE INJECTION 100ML + PIRARUBICIN HYDROCHLORIDE FOR INJECTION 90 MG IVGTT D1
     Route: 041
     Dates: start: 20210825

REACTIONS (1)
  - Myelosuppression [Recovered/Resolved]

NARRATIVE: CASE EVENT DATE: 20210907
